FAERS Safety Report 7746920-1 (Version None)
Quarter: 2011Q3

REPORT INFORMATION
  Report Type: 
  Country: None (occurrence: None)
  Receive Date: 20110913
  Receipt Date: 20110830
  Transmission Date: 20111222
  Serious: Yes (Other)
  Sender: FDA-Public Use
  Company Number: PHHY2011BR77810

PATIENT
  Sex: Female

DRUGS (6)
  1. TIMOLOL MALEATE [Concomitant]
     Indication: GLAUCOMA
     Dosage: UNK
  2. RASILEZ HCT [Suspect]
     Indication: SWELLING
     Dosage: 1 DF, QD
     Route: 048
  3. ATENOLOL [Concomitant]
     Indication: BLOOD PRESSURE
     Dosage: 1 DF, BID
     Route: 048
     Dates: start: 20070101
  4. DIOVAN HCT [Suspect]
     Indication: HYPERTENSION
     Dosage: 1 DF, QD
     Route: 048
  5. LEVOTHYROXINE SODIUM [Concomitant]
     Indication: THYROID DISORDER
     Dosage: 1 DF, QD
     Route: 048
  6. ALDOMET [Concomitant]
     Indication: BLOOD PRESSURE
     Dosage: 1 DF, BID
     Route: 048

REACTIONS (2)
  - SWELLING [None]
  - EYE INFLAMMATION [None]
